FAERS Safety Report 8922851 (Version 2)
Quarter: 2013Q1

REPORT INFORMATION
  Report Type: Spontaneous
  Country: GB (occurrence: GB)
  Receive Date: 20121123
  Receipt Date: 20130118
  Transmission Date: 20140127
  Serious: No
  Sender: FDA-Public Use
  Company Number: PHFR2012GB005997

PATIENT
  Age: 87 Year
  Sex: Male

DRUGS (5)
  1. TEGRETOL [Suspect]
     Indication: CONVULSION
     Dosage: 1 DF, BID
     Dates: start: 20120612
  2. LEVOTHYROXINE [Concomitant]
     Dosage: 50 MG, DAILY
  3. LANSOPRAZOLE [Concomitant]
     Dosage: 1 DF, DAILY
  4. INDORAMIN [Concomitant]
     Dosage: UNK
  5. PARACETAMOL [Concomitant]
     Dosage: 500 MG, UNK

REACTIONS (2)
  - General physical health deterioration [Recovering/Resolving]
  - Convulsion [Recovering/Resolving]
